FAERS Safety Report 22209824 (Version 2)
Quarter: 2023Q2

REPORT INFORMATION
  Report Type: Spontaneous
  Country: JP (occurrence: JP)
  Receive Date: 20230414
  Receipt Date: 20230420
  Transmission Date: 20230722
  Serious: Yes (Death, Hospitalization, Other)
  Sender: FDA-Public Use
  Company Number: JP-NBI-BJ202306317

PATIENT
  Age: 81 Year

DRUGS (2)
  1. IDARUCIZUMAB [Suspect]
     Active Substance: IDARUCIZUMAB
     Indication: Procoagulant therapy
     Route: 042
     Dates: start: 20230326, end: 20230326
  2. HEPARINOID [Concomitant]
     Indication: Product used for unknown indication
     Route: 065

REACTIONS (3)
  - Cardiac failure [Fatal]
  - Cerebral infarction [Recovering/Resolving]
  - Renal impairment [Unknown]

NARRATIVE: CASE EVENT DATE: 20230330
